FAERS Safety Report 5061705-5 (Version None)
Quarter: 2006Q3

REPORT INFORMATION
  Report Type: 
  Country: None (occurrence: None)
  Receive Date: 20060720
  Receipt Date: 20060707
  Transmission Date: 20061208
  Serious: Yes (Congenital Anomaly)
  Sender: FDA-Public Use
  Company Number: 6024151

PATIENT
  Sex: Male

DRUGS (1)
  1. METHIMAZOLE [Suspect]
     Indication: DRUG USE FOR UNKNOWN INDICATION
     Dosage: 20 MG (5 MG, 4 IN 1 D) TRANSPLACENTAL
     Route: 064

REACTIONS (41)
  - ABASIA [None]
  - ABNORMAL PALMAR/PLANTAR CREASES [None]
  - BODY HEIGHT BELOW NORMAL [None]
  - BRAIN HYPOXIA [None]
  - CAESAREAN SECTION [None]
  - CEREBRAL ISCHAEMIA [None]
  - CHARGE SYNDROME [None]
  - CHOANAL ATRESIA [None]
  - CONGENITAL ANOMALY [None]
  - CONGENITAL NOSE MALFORMATION [None]
  - DRUG EXPOSURE DURING PREGNANCY [None]
  - DYSMORPHISM [None]
  - ECHOENCEPHALOGRAM ABNORMAL [None]
  - EYELID PTOSIS [None]
  - FOETAL GROWTH RETARDATION [None]
  - HAIR DISORDER [None]
  - HEAD CIRCUMFERENCE ABNORMAL [None]
  - HIGH ARCHED PALATE [None]
  - HYPERTONIA [None]
  - HYPOTONIA [None]
  - INTUBATION COMPLICATION [None]
  - NEONATAL RESPIRATORY DISTRESS SYNDROME [None]
  - OESOPHAGEAL ATRESIA [None]
  - OPHTHALMOLOGICAL EXAMINATION ABNORMAL [None]
  - PATENT DUCTUS ARTERIOSUS [None]
  - PERIVENTRICULAR LEUKOMALACIA [None]
  - POLYHYDRAMNIOS [None]
  - POSTURE ABNORMAL [None]
  - PREGNANCY [None]
  - PREMATURE BABY [None]
  - PREMATURE RUPTURE OF MEMBRANES [None]
  - PSYCHOMOTOR RETARDATION [None]
  - QUADRIPLEGIA [None]
  - REFLEXES ABNORMAL [None]
  - SKIN DISORDER [None]
  - SKULL MALFORMATION [None]
  - SPEECH DISORDER DEVELOPMENTAL [None]
  - STRABISMUS [None]
  - TALIPES [None]
  - TOOTH HYPOPLASIA [None]
  - UNDERWEIGHT [None]
